FAERS Safety Report 10249328 (Version 1)
Quarter: 2014Q2

REPORT INFORMATION
  Report Type: Spontaneous
  Country: US (occurrence: None)
  Receive Date: 20140522
  Receipt Date: 20140522
  Transmission Date: 20141212
  Serious: No
  Sender: FDA-Public Use
  Company Number: 1000054645

PATIENT
  Age: 82 Year
  Sex: Female

DRUGS (2)
  1. TUDORZA PRESSAIR [Suspect]
     Dosage: 800 UG (400 UG, 2 IN 1 D)
     Route: 055
     Dates: start: 20140203
  2. ALBUTEROL SULFATE [Suspect]
     Route: 055
     Dates: start: 201402

REACTIONS (3)
  - Dry throat [None]
  - Cough [None]
  - Thirst [None]
